FAERS Safety Report 11629326 (Version 1)
Quarter: 2015Q4

REPORT INFORMATION
  Report Type: Spontaneous
  Country: US (occurrence: None)
  Receive Date: 20151013
  Receipt Date: 20151013
  Transmission Date: 20160304
  Serious: Yes (Other)
  Sender: FDA-Public Use
  Company Number: None

PATIENT
  Age: 24 Year
  Sex: Male
  Weight: 46 kg

DRUGS (1)
  1. HYDROQUINONE. [Suspect]
     Active Substance: HYDROQUINONE
     Indication: SKIN DISCOLOURATION
     Route: 061

REACTIONS (1)
  - Skin discolouration [None]
